FAERS Safety Report 8622622 (Version 2)
Quarter: 2012Q4

REPORT INFORMATION
  Report Type: Spontaneous
  Country: CA (occurrence: None)
  Receive Date: 20120605
  Receipt Date: 20120925
  Transmission Date: 20130627
  Serious: Yes (Other)
  Sender: FDA-Public Use
  Company Number: 2012-002026

PATIENT
  Age: 60 Year
  Sex: Male

DRUGS (3)
  1. ACTONEL (RISEDRONATE SODIUM) TABLET, 150MG [Suspect]
     Indication: OSTEOPOROSIS
     Route: 048
  2. CHLOROTHIAZIDE [Concomitant]
  3. NORVASC [Concomitant]

REACTIONS (6)
  - Palpitations [None]
  - Abdominal discomfort [None]
  - Dizziness [None]
  - Dyspnoea [None]
  - Nausea [None]
  - Pyrexia [None]
